FAERS Safety Report 5878020-X (Version None)
Quarter: 2008Q3

REPORT INFORMATION
  Report Type: 
  Country: None (occurrence: None)
  Receive Date: 20080909
  Receipt Date: 20080909
  Transmission Date: 20090109
  Serious: No
  Sender: FDA-Public Use
  Company Number: None

PATIENT
  Age: 91 Year
  Sex: Female
  Weight: 74.8435 kg

DRUGS (2)
  1. LEVAQUIN [Suspect]
     Indication: LOCALISED INFECTION
     Dosage: I TOSSED THE BOTTLE, SORRY, ONE EVERY 48 HOURS, PO
     Dates: start: 20080826, end: 20080828
  2. LEVAQUIN [Suspect]
     Indication: TREATMENT FAILURE
     Dosage: I TOSSED THE BOTTLE, SORRY, ONE EVERY 48 HOURS, PO
     Dates: start: 20080826, end: 20080828

REACTIONS (15)
  - ABDOMINAL PAIN [None]
  - ADVERSE DRUG REACTION [None]
  - ANXIETY [None]
  - ASTHENIA [None]
  - CONVULSION [None]
  - CRYING [None]
  - DRUG INEFFECTIVE [None]
  - DYSKINESIA [None]
  - HALLUCINATION [None]
  - LOCALISED INFECTION [None]
  - MUSCLE TWITCHING [None]
  - NERVOUS SYSTEM DISORDER [None]
  - PAIN [None]
  - SCREAMING [None]
  - URINARY TRACT INFECTION [None]
